FAERS Safety Report 19461033 (Version 1)
Quarter: 2021Q2

REPORT INFORMATION
  Report Type: Spontaneous
  Country: VN (occurrence: VN)
  Receive Date: 20210625
  Receipt Date: 20210625
  Transmission Date: 20210717
  Serious: Yes (Hospitalization, Other)
  Sender: FDA-Public Use
  Company Number: VN-ROCHE-2854815

PATIENT
  Age: 41 Year
  Sex: Male

DRUGS (3)
  1. AVASTIN [Suspect]
     Active Substance: BEVACIZUMAB
     Indication: RECTAL CANCER
     Route: 065
  2. CAPECITABINE. [Suspect]
     Active Substance: CAPECITABINE
     Indication: RECTAL CANCER
     Route: 065
  3. OXALIP [Concomitant]

REACTIONS (12)
  - Gastrointestinal perforation [Unknown]
  - Back pain [Unknown]
  - Spinal pain [Unknown]
  - Diarrhoea [Unknown]
  - Weight increased [Unknown]
  - Cough [Unknown]
  - Dyspnoea [Unknown]
  - Palmar-plantar erythrodysaesthesia syndrome [Unknown]
  - Therapy partial responder [Unknown]
  - Constipation [Unknown]
  - Peripheral paralysis [Unknown]
  - Urinary incontinence [Unknown]

NARRATIVE: CASE EVENT DATE: 202012
